FAERS Safety Report 9230162 (Version 1)
Quarter: 2013Q2

REPORT INFORMATION
  Report Type: Spontaneous
  Country: US (occurrence: None)
  Receive Date: 20130412
  Receipt Date: 20130412
  Transmission Date: 20140414
  Serious: Yes (Other)
  Sender: FDA-Public Use
  Company Number: None

PATIENT
  Age: 83 Year
  Sex: Female
  Weight: 92.99 kg

DRUGS (1)
  1. CROMOLYN SODIUM [Suspect]
     Dates: start: 20130322, end: 20130324

REACTIONS (4)
  - Eye irritation [None]
  - Eye inflammation [None]
  - Eye pruritus [None]
  - Product substitution issue [None]
